FAERS Safety Report 11295475 (Version 1)
Quarter: 2015Q3

REPORT INFORMATION
  Report Type: Spontaneous
  Country: US (occurrence: US)
  Receive Date: 20150722
  Receipt Date: 20150722
  Transmission Date: 20151125
  Serious: No
  Sender: FDA-Public Use
  Company Number: US-ELI_LILLY_AND_COMPANY-US200902000326

PATIENT
  Age: 66 Year
  Sex: Female

DRUGS (1)
  1. EVISTA [Suspect]
     Active Substance: RALOXIFENE HYDROCHLORIDE
     Dosage: UNK, UNKNOWN
     Route: 065
     Dates: end: 200901

REACTIONS (5)
  - Palpitations [Recovered/Resolved]
  - Chest discomfort [Recovered/Resolved]
  - Muscle spasms [Recovered/Resolved]
  - Feeling abnormal [Recovered/Resolved]
  - Dyspnoea [Recovered/Resolved]

NARRATIVE: CASE EVENT DATE: 200807
